FAERS Safety Report 8309116 (Version 5)
Quarter: 2013Q1

REPORT INFORMATION
  Report Type: Spontaneous
  Country: US (occurrence: US)
  Receive Date: 20111222
  Receipt Date: 20130214
  Transmission Date: 20140127
  Serious: Yes (Other)
  Sender: FDA-Public Use
  Company Number: US-ASTRAZENECA-2011SE38830

PATIENT
  Age: 73 Year
  Sex: Female

DRUGS (8)
  1. NEXIUM [Suspect]
     Indication: GASTROOESOPHAGEAL REFLUX DISEASE
     Route: 048
  2. NEXIUM [Suspect]
     Indication: GASTROOESOPHAGEAL REFLUX DISEASE
     Dosage: BID
     Route: 048
  3. NEXIUM [Suspect]
     Indication: GASTROOESOPHAGEAL REFLUX DISEASE
     Route: 048
  4. PRILOSEC [Suspect]
     Route: 048
  5. ACCOLATE [Suspect]
     Indication: ASTHMA
     Route: 048
  6. FORTEO [Concomitant]
  7. ACIPHEX [Concomitant]
  8. COUMADIN [Concomitant]

REACTIONS (23)
  - Pelvic fracture [Unknown]
  - Fall [Unknown]
  - Arthritis [Unknown]
  - Asthma [Unknown]
  - Eating disorder [Unknown]
  - Road traffic accident [Unknown]
  - Disease recurrence [Unknown]
  - Gastric disorder [Unknown]
  - Dysphonia [Unknown]
  - Weight decreased [Unknown]
  - Osteoarthritis [Unknown]
  - Osteoporosis [Unknown]
  - Pain [Unknown]
  - Condition aggravated [Unknown]
  - Stress [Unknown]
  - Bronchitis [Unknown]
  - Gastrooesophageal reflux disease [Unknown]
  - Malaise [Unknown]
  - Malaise [Unknown]
  - Drug ineffective [Unknown]
  - Intentional drug misuse [Unknown]
  - Intentional drug misuse [Unknown]
  - Drug dose omission [Unknown]
